FAERS Safety Report 5477239-X (Version None)
Quarter: 2007Q4

REPORT INFORMATION
  Report Type: 
  Country: None (occurrence: None)
  Receive Date: 20071004
  Receipt Date: 20070926
  Transmission Date: 20080405
  Serious: Yes (Other)
  Sender: FDA-Public Use
  Company Number: US-ELI_LILLY_AND_COMPANY-US200709006447

PATIENT
  Age: 32 Year
  Sex: Female

DRUGS (3)
  1. HUMALOG [Suspect]
     Indication: DIABETES MELLITUS
     Route: 058
     Dates: start: 19990101, end: 20020101
  2. NOVOLOG [Concomitant]
  3. LANTUS [Concomitant]

REACTIONS (1)
  - PANCREAS ISLET CELL TRANSPLANT [None]
